FAERS Safety Report 8615466-0 (Version None)
Quarter: 2012Q3

REPORT INFORMATION
  Report Type: 
  Country: None (occurrence: None)
  Receive Date: 20120823
  Receipt Date: 20120813
  Transmission Date: 20120928
  Serious: Yes (Hospitalization, Other)
  Sender: FDA-Public Use
  Company Number: US-ELI_LILLY_AND_COMPANY-US201208004358

PATIENT
  Sex: Male

DRUGS (4)
  1. HUMULIN R [Suspect]
     Dosage: 35 U, PRN
  2. HUMULIN N [Suspect]
     Indication: DIABETES MELLITUS
     Dosage: UNK, UNKNOWN
     Dates: start: 20020316
  3. HUMULIN R [Suspect]
     Indication: DIABETES MELLITUS
     Dosage: UNK, UNKNOWN
     Dates: start: 20020316
  4. HUMULIN N [Suspect]
     Dosage: 60 U, UNK

REACTIONS (6)
  - CARDIAC DISORDER [None]
  - STENT PLACEMENT [None]
  - CHEST PAIN [None]
  - FATIGUE [None]
  - ARTERIAL THROMBOSIS [None]
  - PULMONARY THROMBOSIS [None]
